FAERS Safety Report 7989261-X (Version None)
Quarter: 2011Q4

REPORT INFORMATION
  Report Type: 
  Country: None (occurrence: None)
  Receive Date: 20111219
  Receipt Date: 20111209
  Transmission Date: 20120403
  Serious: Yes (Other)
  Sender: FDA-Public Use
  Company Number: JP-JNJFOC-20110803818

PATIENT
  Sex: Male

DRUGS (42)
  1. FENTANYL CITRATE [Suspect]
     Route: 041
     Dates: start: 20110414, end: 20110415
  2. FENTANYL CITRATE [Suspect]
     Route: 062
     Dates: start: 20110523, end: 20110526
  3. FENTANYL CITRATE [Suspect]
     Route: 041
     Dates: start: 20110522, end: 20110522
  4. FENTANYL CITRATE [Suspect]
     Indication: METASTASIS
     Route: 041
     Dates: start: 20110511, end: 20110514
  5. FENTANYL CITRATE [Suspect]
     Route: 041
     Dates: start: 20110523, end: 20110604
  6. FENTANYL CITRATE [Suspect]
     Route: 041
     Dates: start: 20110506, end: 20110510
  7. FENTANYL CITRATE [Suspect]
     Route: 041
     Dates: start: 20110511, end: 20110514
  8. FENTANYL CITRATE [Suspect]
     Route: 041
     Dates: start: 20110406, end: 20110413
  9. FENTANYL-100 [Suspect]
     Indication: METASTASIS
     Route: 062
     Dates: start: 20110416, end: 20110505
  10. FENTANYL CITRATE [Suspect]
     Route: 062
     Dates: start: 20110608, end: 20110608
  11. FENTANYL CITRATE [Suspect]
     Route: 041
     Dates: start: 20110515, end: 20110521
  12. FENTANYL CITRATE [Suspect]
     Indication: LEUKAEMIA
     Route: 041
     Dates: start: 20110511, end: 20110514
  13. FENTANYL CITRATE [Suspect]
     Route: 041
     Dates: start: 20110522, end: 20110522
  14. FENTANYL CITRATE [Suspect]
     Indication: CANCER PAIN
     Route: 041
     Dates: start: 20110523, end: 20110604
  15. FENTANYL CITRATE [Suspect]
     Route: 041
     Dates: start: 20110515, end: 20110521
  16. FENTANYL CITRATE [Suspect]
     Route: 041
     Dates: start: 20110506, end: 20110510
  17. FENTANYL CITRATE [Suspect]
     Route: 041
     Dates: start: 20110414, end: 20110415
  18. FENTANYL CITRATE [Suspect]
     Route: 041
     Dates: start: 20110506, end: 20110510
  19. FENTANYL CITRATE [Suspect]
     Route: 041
     Dates: start: 20110406, end: 20110413
  20. FENTANYL CITRATE [Suspect]
     Route: 041
     Dates: start: 20110522, end: 20110522
  21. FENTANYL CITRATE [Suspect]
     Route: 041
     Dates: start: 20110515, end: 20110521
  22. FENTANYL CITRATE [Suspect]
     Route: 041
     Dates: start: 20110522, end: 20110522
  23. FENTANYL CITRATE [Suspect]
     Route: 041
     Dates: start: 20110414, end: 20110415
  24. FENTANYL-100 [Suspect]
     Indication: LEUKAEMIA
     Route: 062
     Dates: start: 20110416, end: 20110505
  25. FENTANYL CITRATE [Suspect]
     Route: 062
     Dates: start: 20110522, end: 20110522
  26. FENTANYL CITRATE [Suspect]
     Indication: BACK PAIN
     Route: 041
     Dates: start: 20110523, end: 20110604
  27. FENTANYL CITRATE [Suspect]
     Route: 041
     Dates: start: 20110511, end: 20110514
  28. FENTANYL CITRATE [Suspect]
     Route: 041
     Dates: start: 20110506, end: 20110510
  29. FENTANYL-100 [Suspect]
     Indication: BACK PAIN
     Route: 062
     Dates: start: 20110416, end: 20110505
  30. FENTANYL CITRATE [Suspect]
     Route: 062
     Dates: start: 20110609, end: 20110609
  31. FENTANYL CITRATE [Suspect]
     Route: 041
     Dates: start: 20110406, end: 20110413
  32. FENTANYL CITRATE [Suspect]
     Route: 041
     Dates: start: 20110523, end: 20110604
  33. FENTANYL CITRATE [Suspect]
     Route: 062
     Dates: start: 20110522, end: 20110522
  34. FENTANYL CITRATE [Suspect]
     Route: 062
     Dates: start: 20110608, end: 20110608
  35. FENTANYL CITRATE [Suspect]
     Route: 062
     Dates: start: 20110527, end: 20110607
  36. FENTANYL CITRATE [Suspect]
     Route: 041
     Dates: start: 20110414, end: 20110415
  37. FENTANYL CITRATE [Suspect]
     Route: 041
     Dates: start: 20110406, end: 20110413
  38. FENTANYL CITRATE [Suspect]
     Route: 041
     Dates: start: 20110515, end: 20110521
  39. FENTANYL CITRATE [Suspect]
     Route: 062
     Dates: start: 20110609, end: 20110609
  40. FENTANYL CITRATE [Suspect]
     Route: 062
     Dates: start: 20110527, end: 20110607
  41. FENTANYL CITRATE [Suspect]
     Route: 062
     Dates: start: 20110523, end: 20110526
  42. MORPHINE HYDROCHLORIDE [Suspect]
     Indication: BACK PAIN
     Route: 065

REACTIONS (2)
  - DRUG DEPENDENCE [None]
  - WITHDRAWAL SYNDROME [None]
